FAERS Safety Report 4624325-X (Version None)
Quarter: 2005Q1

REPORT INFORMATION
  Report Type: 
  Country: None (occurrence: None)
  Receive Date: 20050330
  Receipt Date: 20050330
  Transmission Date: 20050727
  Serious: Yes (Other)
  Sender: FDA-Public Use
  Company Number: None

PATIENT
  Age: 52 Year
  Sex: Female
  Weight: 86.4 kg

DRUGS (8)
  1. XOLAIR [Suspect]
     Indication: ASTHMA
     Dosage: 150 MG Q MO; SQ
     Route: 058
     Dates: start: 20041207
  2. XOLAIR [Suspect]
     Indication: ASTHMA
     Dosage: 150 MG Q MO; SQ
     Route: 058
     Dates: start: 20050104
  3. ALBUTEROL [Concomitant]
  4. ADVAIR DISKUS 100/50 [Concomitant]
  5. QVAR 40 [Concomitant]
  6. SINGULAIR [Concomitant]
  7. XANAX [Concomitant]
  8. ZANTAC [Concomitant]

REACTIONS (4)
  - ARTHRALGIA [None]
  - CHEST PAIN [None]
  - COLD SWEAT [None]
  - MYALGIA [None]
